FAERS Safety Report 4428012-2 (Version None)
Quarter: 2004Q3

REPORT INFORMATION
  Report Type: 
  Country: None (occurrence: None)
  Receive Date: 20040813
  Receipt Date: 20040731
  Transmission Date: 20050211
  Serious: Yes (Other)
  Sender: FDA-Public Use
  Company Number: 2004052127

PATIENT
  Sex: 0

DRUGS (2)
  1. GEODON [Suspect]
     Indication: EPILEPSY
  2. RISPERDAL [Concomitant]

REACTIONS (4)
  - CONDITION AGGRAVATED [None]
  - CONVULSION [None]
  - COUGH [None]
  - EPILEPSY [None]
